FAERS Safety Report 8433757 (Version 2)
Quarter: 2013Q1

REPORT INFORMATION
  Report Type: Report from Study
  Country: JP (occurrence: JP)
  Receive Date: 20120229
  Receipt Date: 20130102
  Transmission Date: 20140127
  Serious: Yes (Hospitalization, Other)
  Sender: FDA-Public Use
  Company Number: PHHY2012JP015908

PATIENT
  Age: 72 Year
  Sex: Male
  Weight: 61 kg

DRUGS (8)
  1. AFINITOR [Suspect]
     Indication: METASTATIC RENAL CELL CARCINOMA
     Dosage: 10 MG, DAILY
     Route: 048
     Dates: start: 20110823, end: 20110826
  2. AFINITOR [Suspect]
     Dosage: 10 MG, DAILY
     Route: 048
     Dates: start: 20110903, end: 20110929
  3. AFINITOR [Suspect]
     Dosage: 10 MG, DAILY
     Route: 048
     Dates: start: 20111007, end: 20111031
  4. AFINITOR [Suspect]
     Dosage: 5 MG, DAILY
     Route: 048
     Dates: start: 20111101, end: 20120313
  5. MICARDIS [Concomitant]
     Dosage: 40 MG, UNK
     Route: 048
  6. ADALAT CR [Concomitant]
     Dosage: 60 MG, UNK
     Route: 048
  7. KENALOG [Concomitant]
     Indication: PROPHYLAXIS
     Dosage: UNK UKN, UNK
  8. HACHIAZULE [Concomitant]
     Indication: PROPHYLAXIS
     Dosage: UNK
     Route: 048
     Dates: start: 20120324

REACTIONS (2)
  - Pneumonia bacterial [Recovered/Resolved]
  - C-reactive protein increased [Unknown]
